FAERS Safety Report 5088784-3 (Version None)
Quarter: 2006Q3

REPORT INFORMATION
  Report Type: 
  Country: None (occurrence: None)
  Receive Date: 20060825
  Receipt Date: 20060823
  Transmission Date: 20061208
  Serious: Yes (Hospitalization)
  Sender: FDA-Public Use
  Company Number: US-GLAXOSMITHKLINE-A0617873A

PATIENT
  Age: 8 Year
  Sex: Male
  Weight: 31 kg

DRUGS (10)
  1. PAXIL [Suspect]
     Indication: OBSESSIVE-COMPULSIVE DISORDER
     Route: 048
     Dates: end: 20001201
  2. TEGRETOL [Concomitant]
  3. ZYPREXA [Concomitant]
     Dates: end: 20001201
  4. DEPAKOTE [Concomitant]
     Dates: start: 20000928, end: 20001201
  5. RISPERDAL [Concomitant]
  6. CLONIDINE [Concomitant]
  7. EFFEXOR XR [Concomitant]
     Dates: start: 20001201
  8. ADDERALL 10 [Concomitant]
  9. TRAZODONE HCL [Concomitant]
  10. ALLERGY SHOT [Concomitant]

REACTIONS (14)
  - ABNORMAL BEHAVIOUR [None]
  - AGGRESSION [None]
  - AGITATION [None]
  - BIPOLAR DISORDER [None]
  - BITE [None]
  - CONVULSION [None]
  - DEPRESSION [None]
  - ENURESIS [None]
  - HOMICIDAL IDEATION [None]
  - INTENTIONAL SELF-INJURY [None]
  - SCREAMING [None]
  - STARING [None]
  - SUICIDAL BEHAVIOUR [None]
  - WEIGHT INCREASED [None]
